FAERS Safety Report 9772719 (Version 3)
Quarter: 2014Q1

REPORT INFORMATION
  Report Type: Spontaneous
  Country: US (occurrence: US)
  Receive Date: 20131219
  Receipt Date: 20140305
  Transmission Date: 20141002
  Serious: Yes (Hospitalization)
  Sender: FDA-Public Use
  Company Number: US-ABBVIE-13P-163-1179888-00

PATIENT
  Age: 73 Year
  Sex: Male
  Weight: 93.07 kg

DRUGS (18)
  1. ANDROGEL [Suspect]
     Indication: BLOOD TESTOSTERONE DECREASED
     Dates: start: 2006, end: 20130227
  2. ANDROGEL [Suspect]
     Indication: HYPOGONADISM
  3. METFORMIN [Concomitant]
     Indication: DIABETES MELLITUS
  4. TOPROL [Concomitant]
     Indication: HYPERTENSION
  5. LISINOPRIL [Concomitant]
     Indication: HYPERTENSION
  6. TERAZOSINE [Concomitant]
     Indication: DYSURIA
  7. CHOLESTEROL MEDICATION [Concomitant]
     Indication: BLOOD CHOLESTEROL INCREASED
  8. VITAMIN E [Concomitant]
     Indication: VITAMIN SUPPLEMENTATION
  9. VITAMIN C [Concomitant]
     Indication: VITAMIN SUPPLEMENTATION
  10. FISH OIL [Concomitant]
     Indication: SUPPLEMENTATION THERAPY
  11. BETA CAROTENE [Concomitant]
     Indication: SUPPLEMENTATION THERAPY
  12. CENTRUM SILVER [Concomitant]
     Indication: VITAMIN SUPPLEMENTATION
  13. ASPIRIN [Concomitant]
     Indication: PRODUCT USED FOR UNKNOWN INDICATION
  14. FOLIC ACID [Concomitant]
     Indication: VITAMIN SUPPLEMENTATION
  15. MAGNESIUM [Concomitant]
     Indication: MINERAL SUPPLEMENTATION
  16. SIMVASTATIN [Concomitant]
     Indication: BLOOD CHOLESTEROL INCREASED
  17. NEXIUM [Concomitant]
     Indication: GASTROOESOPHAGEAL REFLUX DISEASE
  18. DHEA [Concomitant]
     Indication: PRODUCT USED FOR UNKNOWN INDICATION
     Route: 048

REACTIONS (8)
  - Non-cardiac chest pain [Not Recovered/Not Resolved]
  - Ejection fraction decreased [Not Recovered/Not Resolved]
  - Myocardial ischaemia [Not Recovered/Not Resolved]
  - Cardiovascular disorder [Not Recovered/Not Resolved]
  - Breast tenderness [Not Recovered/Not Resolved]
  - Breast mass [Not Recovered/Not Resolved]
  - Coronary artery disease [Not Recovered/Not Resolved]
  - Gynaecomastia [Not Recovered/Not Resolved]
